FAERS Safety Report 5738019-0 (Version None)
Quarter: 2008Q2

REPORT INFORMATION
  Report Type: 
  Country: None (occurrence: None)
  Receive Date: 20080509
  Receipt Date: 20080423
  Transmission Date: 20081010
  Serious: Yes (Hospitalization)
  Sender: FDA-Public Use
  Company Number: GB-DEXPHARM-20080413

PATIENT
  Age: 72 Year
  Sex: Male

DRUGS (4)
  1. OMEPRAZOLE [Suspect]
  2. PHENYTOIN [Suspect]
     Dosage: ^2/1 DAYS^ {200 MG MILLIGRAM(S)}
  3. INDAPAMIDE [Concomitant]
  4. PERINDOPRIL ERBUMINE [Concomitant]

REACTIONS (9)
  - ATAXIA [None]
  - BALANCE DISORDER [None]
  - CEREBELLAR SYNDROME [None]
  - COORDINATION ABNORMAL [None]
  - DRUG INTERACTION [None]
  - FALL [None]
  - NYSTAGMUS [None]
  - PAST-POINTING [None]
  - TREMOR [None]
